FAERS Safety Report 24906561 (Version 2)
Quarter: 2025Q1

REPORT INFORMATION
  Report Type: Spontaneous
  Country: CA (occurrence: CA)
  Receive Date: 20250130
  Receipt Date: 20250324
  Transmission Date: 20250409
  Serious: Yes (Other)
  Sender: PFIZER
  Company Number: CA-PFIZER INC-202500018564

PATIENT
  Age: 70 Year
  Sex: Female

DRUGS (2)
  1. ABRILADA [Suspect]
     Active Substance: ADALIMUMAB-AFZB
     Indication: Crohn^s disease
     Dosage: 40 MG, ONCE WEEKLY
     Route: 058
     Dates: start: 20220724, end: 202401
  2. ABRILADA [Suspect]
     Active Substance: ADALIMUMAB-AFZB

REACTIONS (2)
  - Knee arthroplasty [Unknown]
  - Off label use [Unknown]

NARRATIVE: CASE EVENT DATE: 20220724
